FAERS Safety Report 7382233-8 (Version None)
Quarter: 2011Q1

REPORT INFORMATION
  Report Type: 
  Country: None (occurrence: None)
  Receive Date: 20110329
  Receipt Date: 20110316
  Transmission Date: 20110831
  Serious: Yes (Hospitalization, Other)
  Sender: FDA-Public Use
  Company Number: US-AMGEN-QUU416510

PATIENT
  Age: 23 Year
  Sex: Female
  Weight: 110 kg

DRUGS (8)
  1. OXYCODONE [Concomitant]
  2. NPLATE [Suspect]
     Indication: IDIOPATHIC THROMBOCYTOPENIC PURPURA
     Dosage: 3 A?G/KG, QWK
     Dates: start: 20100513
  3. FOLIC ACID [Concomitant]
  4. PHENERGAN HCL [Concomitant]
  5. CORTICOSTEROIDS [Concomitant]
     Dosage: UNK
     Dates: start: 20100409
  6. ATIVAN [Concomitant]
  7. ARIXTRA [Concomitant]
  8. COUMADIN [Concomitant]

REACTIONS (16)
  - BLOOD CREATINE PHOSPHOKINASE INCREASED [None]
  - POSTOPERATIVE THROMBOSIS [None]
  - VENOUS THROMBOSIS LIMB [None]
  - CHEST PAIN [None]
  - RUPTURED ECTOPIC PREGNANCY [None]
  - NICOTINE DEPENDENCE [None]
  - LEUKOCYTOSIS [None]
  - PLEURISY [None]
  - ANAEMIA [None]
  - CARDIOMYOPATHY [None]
  - PULMONARY EMBOLISM [None]
  - DYSPNOEA [None]
  - LUNG NEOPLASM [None]
  - MYOCARDITIS [None]
  - TROPONIN INCREASED [None]
  - PARAESTHESIA [None]
